FAERS Safety Report 4676712-1 (Version None)
Quarter: 2005Q2

REPORT INFORMATION
  Report Type: 
  Country: None (occurrence: None)
  Receive Date: 20050527
  Receipt Date: 20050517
  Transmission Date: 20051028
  Serious: Yes (Life-Threatening, Other)
  Sender: FDA-Public Use
  Company Number: AR-NOVOPROD-244317

PATIENT
  Age: 14 Year
  Sex: Male

DRUGS (2)
  1. NOVOSEVEN [Suspect]
     Indication: TRAUMATIC HAEMORRHAGE
     Dosage: 9.6 MG 2 H APART
  2. NOVOSEVEN [Suspect]
     Dosage: 4.8 MG, UNK

REACTIONS (4)
  - DEEP VEIN THROMBOSIS [None]
  - ISCHAEMIA [None]
  - MESENTERIC OCCLUSION [None]
  - MUSCLE NECROSIS [None]
